FAERS Safety Report 13711412 (Version 2)
Quarter: 2017Q4

REPORT INFORMATION
  Report Type: Spontaneous
  Country: FR (occurrence: FR)
  Receive Date: 20170703
  Receipt Date: 20171020
  Transmission Date: 20180320
  Serious: Yes (Hospitalization)
  Sender: FDA-Public Use
  Company Number: FR-MYLANLABS-2017M1039925

PATIENT
  Age: 7 Year
  Sex: Female
  Weight: 13 kg

DRUGS (2)
  1. MERCAPTAMINE [Suspect]
     Active Substance: CYSTEAMINE
     Indication: CYSTINOSIS
     Dosage: 50 MG, 4.5 TIMES DAILY
     Route: 048
     Dates: end: 201706
  2. MERCAPTAMINE [Suspect]
     Active Substance: CYSTEAMINE
     Dosage: 150 MG, 4.5 TIMES DAILY
     Route: 048
     Dates: start: 201706, end: 20170608

REACTIONS (5)
  - Incorrect dose administered [Recovered/Resolved]
  - Vomiting [Recovered/Resolved]
  - General physical health deterioration [Recovered/Resolved]
  - Accidental overdose [Recovered/Resolved]
  - Apathy [Recovered/Resolved]

NARRATIVE: CASE EVENT DATE: 201706
